FAERS Safety Report 8407099-6 (Version None)
Quarter: 2012Q2

REPORT INFORMATION
  Report Type: 
  Country: None (occurrence: None)
  Receive Date: 20120604
  Receipt Date: 20120525
  Transmission Date: 20120825
  Serious: Yes (Hospitalization)
  Sender: FDA-Public Use
  Company Number: FR-ROCHE-1072399

PATIENT
  Sex: Female

DRUGS (16)
  1. VICTRELIS [Suspect]
     Indication: HEPATITIS C
     Route: 048
     Dates: start: 20060101, end: 20080101
  2. PEGASYS [Suspect]
     Route: 058
     Dates: start: 20120102
  3. PEGASYS [Suspect]
     Indication: HEPATITIS C
     Route: 058
     Dates: start: 20060101, end: 20080101
  4. VICTRELIS [Suspect]
     Route: 048
     Dates: start: 20110401, end: 20110701
  5. VICTRELIS [Suspect]
     Route: 048
     Dates: start: 20120102
  6. VICTRELIS [Suspect]
     Dosage: DOSE: 200 MG
     Route: 048
     Dates: start: 20120209
  7. BRONCHOKOD [Concomitant]
     Indication: BRONCHITIS
     Dates: start: 20120101
  8. COPEGUS [Suspect]
     Route: 048
     Dates: start: 20110401, end: 20110701
  9. PEGASYS [Suspect]
     Route: 058
     Dates: start: 20110401, end: 20110701
  10. DETURGYLONE [Concomitant]
     Dates: start: 20120221
  11. COPEGUS [Suspect]
     Indication: HEPATITIS C
     Route: 048
     Dates: start: 20060101, end: 20080101
  12. CEFPODOXIME PROXETIL [Concomitant]
     Indication: BRONCHITIS
     Dates: start: 20120101
  13. BRONCHOKOD [Concomitant]
     Dates: start: 20120221
  14. COPEGUS [Suspect]
     Route: 048
     Dates: start: 20120102
  15. CEFPODOXIME PROXETIL [Concomitant]
     Dates: start: 20120221
  16. DETURGYLONE [Concomitant]
     Indication: BRONCHITIS
     Dates: start: 20120101

REACTIONS (2)
  - OEDEMA PERIPHERAL [None]
  - DYSPNOEA EXERTIONAL [None]
